FAERS Safety Report 8125235-6 (Version None)
Quarter: 2012Q1

REPORT INFORMATION
  Report Type: 
  Country: None (occurrence: None)
  Receive Date: 20120209
  Receipt Date: 20120207
  Transmission Date: 20120608
  Serious: Yes (Death, Other)
  Sender: FDA-Public Use
  Company Number: DE-B.I. PHARMACEUTICALS,INC./RIDGEFIELD-2011-DE-06546DE

PATIENT
  Sex: Female

DRUGS (4)
  1. PRADAXA [Suspect]
     Indication: ATRIAL FIBRILLATION
     Dosage: 220 MG
     Route: 048
     Dates: start: 20110902, end: 20110909
  2. CITALOPRAM HYDROBROMIDE [Concomitant]
     Indication: DEPRESSION
     Dosage: 20 MG
     Route: 048
     Dates: start: 20110902, end: 20110909
  3. PRADAXA [Suspect]
     Indication: INTERNATIONAL NORMALISED RATIO
  4. PRADAXA [Suspect]
     Indication: EMBOLISM

REACTIONS (2)
  - CONDITION AGGRAVATED [None]
  - DEATH [None]
